FAERS Safety Report 10228675 (Version 5)
Quarter: 2014Q4

REPORT INFORMATION
  Report Type: Spontaneous
  Country: JP (occurrence: JP)
  Receive Date: 20140610
  Receipt Date: 20141113
  Transmission Date: 20150528
  Serious: Yes (Hospitalization)
  Sender: FDA-Public Use
  Company Number: CHPA2014JP007804

PATIENT
  Age: 54 Year
  Sex: Male
  Weight: 51 kg

DRUGS (2)
  1. NICOTINELL [Suspect]
     Active Substance: NICOTINE
     Indication: NICOTINE DEPENDENCE
     Dosage: 35 MG, QD
     Route: 062
     Dates: start: 20140516, end: 20140529
  2. NICOTINELL TTS 30 [Suspect]
     Active Substance: NICOTINE
     Indication: NICOTINE DEPENDENCE
     Dosage: 52.5 MG, QD
     Route: 062
     Dates: start: 20140418, end: 20140515

REACTIONS (6)
  - Haematemesis [Unknown]
  - Faeces discoloured [Unknown]
  - Oropharyngeal discomfort [Unknown]
  - Gastric ulcer haemorrhage [Recovering/Resolving]
  - Melaena [Unknown]
  - Haematochezia [Unknown]

NARRATIVE: CASE EVENT DATE: 201405
